FAERS Safety Report 19043103 (Version 1)
Quarter: 2021Q1

REPORT INFORMATION
  Report Type: Spontaneous
  Country: CA (occurrence: CA)
  Receive Date: 20210323
  Receipt Date: 20210323
  Transmission Date: 20210420
  Serious: Yes (Other)
  Sender: FDA-Public Use
  Company Number: CA-JNJFOC-20210334506

PATIENT
  Age: 46 Year
  Sex: Male
  Weight: 82 kg

DRUGS (9)
  1. DIMENHYDRINATE. [Concomitant]
     Active Substance: DIMENHYDRINATE
     Route: 048
  2. HYDROCORTISONE. [Concomitant]
     Active Substance: HYDROCORTISONE
     Indication: PREMEDICATION
     Route: 042
  3. DIPHENHYDRAMINE. [Concomitant]
     Active Substance: DIPHENHYDRAMINE
     Indication: PREMEDICATION
     Route: 048
  4. METHOTREXATE. [Concomitant]
     Active Substance: METHOTREXATE
  5. ACETAMINOPHEN. [Concomitant]
     Active Substance: ACETAMINOPHEN
     Indication: PREMEDICATION
     Route: 048
  6. METHYLPREDNISOLONE. [Concomitant]
     Active Substance: METHYLPREDNISOLONE
     Indication: PREMEDICATION
     Route: 042
  7. REMICADE [Suspect]
     Active Substance: INFLIXIMAB
     Indication: PSORIATIC ARTHROPATHY
     Route: 042
  8. ARAVA [Concomitant]
     Active Substance: LEFLUNOMIDE
  9. CLARITHROMYCIN. [Concomitant]
     Active Substance: CLARITHROMYCIN

REACTIONS (7)
  - Weight decreased [Unknown]
  - Incorrect dose administered [Unknown]
  - Intentional product use issue [Unknown]
  - Heart rate decreased [Unknown]
  - Product use issue [Unknown]
  - Off label use [Unknown]
  - Inappropriate schedule of product administration [Unknown]
